FAERS Safety Report 8547616-9 (Version None)
Quarter: 2012Q3

REPORT INFORMATION
  Report Type: 
  Country: None (occurrence: None)
  Receive Date: 20120727
  Receipt Date: 20120327
  Transmission Date: 20120928
  Serious: Yes (Other)
  Sender: FDA-Public Use
  Company Number: US-ASTRAZENECA-2012SE20911

PATIENT
  Age: 46 Year
  Sex: Male

DRUGS (5)
  1. SEROQUEL [Suspect]
     Route: 048
  2. SEROQUEL [Suspect]
     Route: 048
  3. LITHIUM CARBONATE [Concomitant]
  4. ZOLOFT [Concomitant]
  5. XANAX [Concomitant]

REACTIONS (8)
  - SUICIDAL IDEATION [None]
  - HERNIA [None]
  - BIPOLAR I DISORDER [None]
  - BIPOLAR DISORDER [None]
  - MALAISE [None]
  - DRUG INEFFECTIVE [None]
  - RESPIRATORY DISORDER [None]
  - TACHYPHRENIA [None]
